FAERS Safety Report 17483587 (Version 4)
Quarter: 2020Q2

REPORT INFORMATION
  Report Type: Spontaneous
  Country: US (occurrence: US)
  Receive Date: 20200302
  Receipt Date: 20200604
  Transmission Date: 20200713
  Serious: No
  Sender: FDA-Public Use
  Company Number: US-PFIZER INC-2020091972

PATIENT
  Age: 66 Year
  Sex: Female

DRUGS (1)
  1. XELJANZ [Suspect]
     Active Substance: TOFACITINIB CITRATE
     Indication: RHEUMATOID ARTHRITIS
     Dosage: 5 MG, 2X/DAY
     Route: 048
     Dates: start: 20200226, end: 202005

REACTIONS (14)
  - Hepatic enzyme decreased [Unknown]
  - Fatigue [Unknown]
  - Inflammation [Recovering/Resolving]
  - Feeling abnormal [Recovering/Resolving]
  - Middle insomnia [Recovering/Resolving]
  - Disturbance in attention [Unknown]
  - Pyrexia [Unknown]
  - Weight increased [Unknown]
  - Tri-iodothyronine decreased [Unknown]
  - Hyperhidrosis [Recovering/Resolving]
  - Blood thyroid stimulating hormone decreased [Unknown]
  - Thyroxine decreased [Unknown]
  - Dyspnoea [Not Recovered/Not Resolved]
  - Heart rate increased [Unknown]

NARRATIVE: CASE EVENT DATE: 202002
